FAERS Safety Report 4753808-7 (Version None)
Quarter: 2005Q3

REPORT INFORMATION
  Report Type: 
  Country: None (occurrence: None)
  Receive Date: 20050823
  Receipt Date: 20050701
  Transmission Date: 20060218
  Serious: No
  Sender: FDA-Public Use
  Company Number: 215818

PATIENT
  Age: 51 Year
  Sex: Male
  Weight: 97.5 kg

DRUGS (1)
  1. RAPTIVA [Suspect]
     Indication: DERMATITIS ATOPIC
     Dosage: SUBCUTANEOUS
     Route: 058
     Dates: start: 20050512

REACTIONS (1)
  - INJECTION SITE HAEMORRHAGE [None]
